FAERS Safety Report 4977012-2 (Version None)
Quarter: 2006Q2

REPORT INFORMATION
  Report Type: 
  Country: None (occurrence: None)
  Receive Date: 20060412
  Receipt Date: 20060403
  Transmission Date: 20061013
  Serious: No
  Sender: FDA-Public Use
  Company Number: 06H-163-0307173-00

PATIENT
  Age: 50 Year
  Sex: Male

DRUGS (1)
  1. AMIODARONE HYDROCHLORIDE [Suspect]
     Indication: VENTRICULAR TACHYCARDIA
     Dosage: 150 MG, INTRAVENOUS INFUSION
     Route: 042

REACTIONS (2)
  - DIZZINESS [None]
  - HYPERHIDROSIS [None]
